FAERS Safety Report 10185589 (Version 1)
Quarter: 2014Q2

REPORT INFORMATION
  Report Type: Report from Study
  Country: JP (occurrence: JP)
  Receive Date: 20140521
  Receipt Date: 20140521
  Transmission Date: 20141212
  Serious: Yes (Other)
  Sender: FDA-Public Use
  Company Number: JP-OTSUKA-JP-2014-14103

PATIENT
  Sex: Female
  Weight: 48.6 kg

DRUGS (11)
  1. SAMSCA [Suspect]
     Indication: OEDEMA DUE TO CARDIAC DISEASE
     Dosage: 7.5 MG MILLIGRAM(S), QAM
     Route: 048
     Dates: start: 20140205, end: 20140207
  2. OLIVES [Concomitant]
     Indication: VENTRICULAR TACHYCARDIA
     Dosage: 1500 MG MILLIGRAM(S), DAILY DOSE
     Route: 042
     Dates: end: 20140206
  3. HEPARIN SODIUM [Concomitant]
     Indication: PROPHYLAXIS
     Dosage: 10 KIU IU(1000S), DAILY DOSE
     Route: 042
  4. HANP [Concomitant]
     Indication: CARDIAC FAILURE
     Dosage: 4000 MCG, DAILY DOSE
     Route: 041
  5. FUROSEMIDE [Concomitant]
     Indication: CARDIAC FAILURE
     Dosage: 40 MG MILLIGRAM(S), DAILY DOSE
     Route: 042
  6. NICORANDIL [Concomitant]
     Indication: CARDIAC FAILURE
     Dosage: 48 MG MILLIGRAM(S), DAILY DOSE
     Route: 042
  7. SELARA [Concomitant]
     Indication: CARDIAC FAILURE
     Dosage: 50 MG MILLIGRAM(S), DAILY DOSE
     Route: 048
  8. SLOW K [Concomitant]
     Dosage: 2400 MG MILLIGRAM(S), DAILY DOSE
     Route: 048
  9. MUCOSOLVAN [Concomitant]
     Dosage: 45 MG MILLIGRAM(S), DAILY DOSE
     Route: 048
  10. RENIVACE [Concomitant]
     Indication: CARDIAC FAILURE
     Dosage: 5 MG MILLIGRAM(S), DAILY DOSE
     Route: 048
  11. ANCARON [Concomitant]
     Dosage: 750 MG MILLIGRAM(S), DAILY DOSE
     Route: 042
     Dates: start: 20140206

REACTIONS (1)
  - Ventricular tachycardia [Unknown]
